FAERS Safety Report 14918301 (Version 3)
Quarter: 2018Q3

REPORT INFORMATION
  Report Type: Report from Study
  Country: CN (occurrence: CN)
  Receive Date: 20180521
  Receipt Date: 20180920
  Transmission Date: 20181010
  Serious: Yes (Other)
  Sender: FDA-Public Use
  Company Number: PHHY2018CN001507

PATIENT
  Age: 41 Year
  Sex: Male

DRUGS (23)
  1. LACTULOSE. [Concomitant]
     Active Substance: LACTULOSE
     Indication: GASTROINTESTINAL PAIN
     Dosage: 15 ML, BID
     Route: 048
     Dates: start: 20160802, end: 20160805
  2. MYFORTIC [Suspect]
     Active Substance: MYCOPHENOLATE SODIUM
     Dosage: 1440 MG, QD
     Route: 065
     Dates: start: 20160731, end: 20160821
  3. MYFORTIC [Suspect]
     Active Substance: MYCOPHENOLATE SODIUM
     Dosage: 1800 MG, QD
     Route: 065
     Dates: start: 20160922, end: 20161026
  4. PANTOPRAZOLE SODIUM. [Concomitant]
     Active Substance: PANTOPRAZOLE SODIUM
     Indication: PROPHYLAXIS AGAINST GASTROINTESTINAL ULCER
     Dosage: 40 MG, BID
     Route: 042
     Dates: start: 20160729
  5. AMBROXOL HYDROCHLORIDE [Concomitant]
     Active Substance: AMBROXOL HYDROCHLORIDE
     Indication: PROPHYLAXIS
     Dosage: 15 MG, TID
     Route: 042
     Dates: start: 20160729, end: 20160801
  6. AMLODIPINE BESYLATE. [Concomitant]
     Active Substance: AMLODIPINE BESYLATE
     Indication: BLOOD PRESSURE INCREASED
     Dosage: 5 MG, TID
     Route: 048
     Dates: start: 20160731
  7. MACROGOL 4000 [Concomitant]
     Active Substance: POLYETHYLENE GLYCOL 4000
     Indication: CONSTIPATION
     Dosage: 10 MG, TID
     Route: 048
     Dates: start: 20160808, end: 20160810
  8. MYFORTIC [Suspect]
     Active Substance: MYCOPHENOLATE SODIUM
     Dosage: 1080 MG, QD
     Route: 065
     Dates: start: 20160908, end: 20160921
  9. MYFORTIC [Suspect]
     Active Substance: MYCOPHENOLATE SODIUM
     Dosage: 1440 MG, QD
     Route: 065
     Dates: start: 20170123, end: 20170612
  10. CEFUROXIME AXETIL. [Concomitant]
     Active Substance: CEFUROXIME AXETIL
     Indication: INFECTION PROPHYLAXIS
     Dosage: 0.25 G, BID
     Route: 048
     Dates: start: 20160811, end: 20170720
  11. POTASSIUM CHLORIDE. [Concomitant]
     Active Substance: POTASSIUM CHLORIDE
     Indication: PRODUCT USED FOR UNKNOWN INDICATION
     Dosage: 1 G, BID
     Route: 048
     Dates: start: 20170505
  12. MYFORTIC [Suspect]
     Active Substance: MYCOPHENOLATE SODIUM
     Indication: RENAL TRANSPLANT
     Dosage: 720 MG, QD
     Route: 065
     Dates: start: 20160728, end: 20160729
  13. MYFORTIC [Suspect]
     Active Substance: MYCOPHENOLATE SODIUM
     Dosage: 1080 MG, QD
     Route: 065
     Dates: start: 20161027, end: 20170122
  14. BASILIXIMAB [Suspect]
     Active Substance: BASILIXIMAB
     Indication: RENAL TRANSPLANT
     Dosage: 20 MG, QD
     Route: 065
     Dates: start: 20160729, end: 20160729
  15. TERAZOSIN HYDROCHLORIDE. [Concomitant]
     Active Substance: TERAZOSIN HYDROCHLORIDE
     Dosage: 2 MG, BID
     Route: 048
     Dates: start: 20160811
  16. CEFOXITIN SODIUM [Concomitant]
     Active Substance: CEFOXITIN SODIUM
     Indication: INFECTION PROPHYLAXIS
     Dosage: 2 G, BID
     Route: 042
     Dates: start: 20160729, end: 20160807
  17. AROTINOLOL HYDROCHLORIDE [Concomitant]
     Active Substance: AROTINOLOL HYDROCHLORIDE
     Indication: BLOOD PRESSURE INCREASED
     Dosage: 10 MG, BID
     Route: 048
     Dates: start: 20160802
  18. GANCICLOVIR. [Concomitant]
     Active Substance: GANCICLOVIR
     Indication: INFECTION PROPHYLAXIS
     Dosage: 1 G, TID
     Route: 048
     Dates: start: 20160818, end: 20161027
  19. MYFORTIC [Suspect]
     Active Substance: MYCOPHENOLATE SODIUM
     Dosage: 1440 MG, QD
     Route: 065
     Dates: start: 20160730, end: 20160730
  20. MYFORTIC [Suspect]
     Active Substance: MYCOPHENOLATE SODIUM
     Dosage: 1800 MG, QD
     Route: 065
     Dates: start: 20160822, end: 20160907
  21. BASILIXIMAB [Suspect]
     Active Substance: BASILIXIMAB
     Dosage: 20 MG, QD
     Route: 065
     Dates: start: 20160802, end: 20160802
  22. TERAZOSIN HYDROCHLORIDE. [Concomitant]
     Active Substance: TERAZOSIN HYDROCHLORIDE
     Indication: BLOOD PRESSURE INCREASED
     Dosage: 2 MG, TID
     Route: 048
     Dates: start: 20160808
  23. NIFEDIPINE. [Concomitant]
     Active Substance: NIFEDIPINE
     Indication: BLOOD PRESSURE INCREASED
     Dosage: 30 MG, BID
     Route: 048
     Dates: start: 20160804, end: 20160818

REACTIONS (6)
  - Urinary tract infection [Recovered/Resolved]
  - Osteoporosis [Not Recovered/Not Resolved]
  - White blood cell count increased [Recovered/Resolved]
  - Infection [Recovered/Resolved]
  - Pyrexia [Recovered/Resolved]
  - Hypercholesterolaemia [Not Recovered/Not Resolved]

NARRATIVE: CASE EVENT DATE: 20160829
